FAERS Safety Report 7715866-7 (Version None)
Quarter: 2011Q3

REPORT INFORMATION
  Report Type: 
  Country: None (occurrence: None)
  Receive Date: 20110829
  Receipt Date: 20110829
  Transmission Date: 20111222
  Serious: Yes (Hospitalization, Other)
  Sender: FDA-Public Use
  Company Number: None

PATIENT
  Age: 67 Year
  Sex: Female
  Weight: 59.874 kg

DRUGS (2)
  1. ALENDRONATE SODIUM [Suspect]
     Indication: RHEUMATOID ARTHRITIS
     Dosage: ONCE
     Route: 048
     Dates: start: 19991101, end: 20100219
  2. ALENDRONATE SODIUM [Suspect]
     Indication: OSTEOARTHRITIS
     Dosage: ONCE
     Route: 048
     Dates: start: 19991101, end: 20100219

REACTIONS (5)
  - FEMUR FRACTURE [None]
  - PAIN [None]
  - FALL [None]
  - LIMB ASYMMETRY [None]
  - STRESS FRACTURE [None]
